FAERS Safety Report 15654414 (Version 2)
Quarter: 2018Q4

REPORT INFORMATION
  Report Type: Spontaneous
  Country: CH (occurrence: CH)
  Receive Date: 20181126
  Receipt Date: 20181129
  Transmission Date: 20190205
  Serious: No
  Sender: FDA-Public Use
  Company Number: CH-ROCHE-2216254

PATIENT
  Sex: Female

DRUGS (2)
  1. MABTHERA [Suspect]
     Active Substance: RITUXIMAB
     Indication: MONONEUROPATHY
     Route: 042
     Dates: start: 20150706, end: 20150720
  2. MABTHERA [Suspect]
     Active Substance: RITUXIMAB
     Route: 042
     Dates: start: 201709, end: 201709

REACTIONS (3)
  - Off label use [Unknown]
  - Intentional product use issue [Unknown]
  - Mononeuropathy [Unknown]
